FAERS Safety Report 17695477 (Version 1)
Quarter: 2020Q2

REPORT INFORMATION
  Report Type: Spontaneous
  Country: US (occurrence: US)
  Receive Date: 20200422
  Receipt Date: 20200422
  Transmission Date: 20200714
  Serious: Yes (Death, Other)
  Sender: FDA-Public Use
  Company Number: US-NAPPMUNDI-USA-2020-0151921

PATIENT
  Age: 35 Year
  Sex: Male

DRUGS (4)
  1. OXYCONTIN [Suspect]
     Active Substance: OXYCODONE HYDROCHLORIDE
     Indication: SICKLE CELL DISEASE
     Dosage: 60 MG, BID
     Route: 048
     Dates: start: 2017
  2. MS CONTIN [Suspect]
     Active Substance: MORPHINE SULFATE
     Indication: SICKLE CELL DISEASE
     Dosage: 30 MG, BID
     Route: 048
     Dates: start: 2017
  3. OXYCODONE HYDROCHLORIDE (SIMILAR TO NDA 22-272) [Suspect]
     Active Substance: OXYCODONE HYDROCHLORIDE
     Dosage: 5 MG, Q4- 6H PRN
     Route: 048
     Dates: start: 201802
  4. OXYCODONE HYDROCHLORIDE (SIMILAR TO NDA 22-272) [Suspect]
     Active Substance: OXYCODONE HYDROCHLORIDE
     Indication: SICKLE CELL DISEASE
     Dosage: 10 MG, Q4- 6H PRN
     Route: 048
     Dates: start: 2012, end: 2018

REACTIONS (4)
  - Aggression [Unknown]
  - Feeling abnormal [Unknown]
  - Thrombosis [Fatal]
  - Drug dependence [Unknown]

NARRATIVE: CASE EVENT DATE: 20180820
